FAERS Safety Report 12542350 (Version 1)
Quarter: 2016Q3

REPORT INFORMATION
  Report Type: Spontaneous
  Country: US (occurrence: US)
  Receive Date: 20160708
  Receipt Date: 20160708
  Transmission Date: 20161109
  Serious: Yes (Other)
  Sender: FDA-Public Use
  Company Number: US-TEIKOKU PHARMA USA-TPU2016-00428

PATIENT
  Sex: Female
  Weight: 49.49 kg

DRUGS (4)
  1. LIDODERM [Suspect]
     Active Substance: LIDOCAINE
     Indication: COMPLEX REGIONAL PAIN SYNDROME
     Dosage: 1-3 PATCHES ON EACH ARM
     Route: 061
     Dates: start: 1995
  2. LIDODERM [Suspect]
     Active Substance: LIDOCAINE
     Indication: HERPES ZOSTER
     Dosage: ON LEFT SIDE OF HER BACK
     Route: 061
     Dates: start: 201405, end: 2014
  3. LIDODERM [Suspect]
     Active Substance: LIDOCAINE
     Dates: end: 201601
  4. BRILINTA [Suspect]
     Active Substance: TICAGRELOR
     Dates: start: 201503, end: 201505

REACTIONS (8)
  - Body height decreased [Not Recovered/Not Resolved]
  - Stent placement [Unknown]
  - Herpes zoster [Recovered/Resolved]
  - Application site erosion [Recovered/Resolved]
  - Hepatic enzyme increased [Recovered/Resolved]
  - Immobile [Recovered/Resolved]
  - Drug administration error [Recovered/Resolved]
  - Feeling abnormal [Recovered/Resolved]

NARRATIVE: CASE EVENT DATE: 2007
